FAERS Safety Report 9386093 (Version 1)
Quarter: 2013Q3

REPORT INFORMATION
  Report Type: Spontaneous
  Country: US (occurrence: US)
  Receive Date: 20130706
  Receipt Date: 20130706
  Transmission Date: 20140515
  Serious: Yes (Hospitalization)
  Sender: FDA-Public Use
  Company Number: US-UCBSA-090727

PATIENT
  Sex: 0

DRUGS (2)
  1. CIMZIA [Suspect]
  2. REMICADE [Concomitant]

REACTIONS (2)
  - Muscle atrophy [Unknown]
  - Asthenia [Unknown]
